FAERS Safety Report 8103034-9 (Version None)
Quarter: 2012Q1

REPORT INFORMATION
  Report Type: 
  Country: None (occurrence: None)
  Receive Date: 20120201
  Receipt Date: 20120201
  Transmission Date: 20120608
  Serious: Yes (Disabling, Other)
  Sender: FDA-Public Use
  Company Number: None

PATIENT
  Age: 75 Year
  Sex: Male
  Weight: 95.254 kg

DRUGS (2)
  1. SIMVASTATIN [Suspect]
     Indication: MYOSITIS
     Dosage: 40MG
     Route: 048
     Dates: start: 20100610, end: 20110605
  2. SIMVASTATIN [Suspect]
     Indication: RHABDOMYOLYSIS
     Dosage: 40MG
     Route: 048
     Dates: start: 20100610, end: 20110605

REACTIONS (2)
  - MYOGLOBIN BLOOD INCREASED [None]
  - BLOOD CREATINE PHOSPHOKINASE INCREASED [None]
